FAERS Safety Report 5016688-0 (Version None)
Quarter: 2006Q2

REPORT INFORMATION
  Report Type: 
  Country: None (occurrence: None)
  Receive Date: 20060414
  Receipt Date: 20060126
  Transmission Date: 20061013
  Serious: No
  Sender: FDA-Public Use
  Company Number: 2006SP000466

PATIENT
  Age: 53 Year
  Sex: Female
  Weight: 71.6683 kg

DRUGS (9)
  1. LUNESTA [Suspect]
     Indication: INSOMNIA
     Dosage: SEE IMAGE
     Route: 048
     Dates: start: 20060123, end: 20060124
  2. LUNESTA [Suspect]
     Indication: INSOMNIA
     Dosage: SEE IMAGE
     Route: 048
     Dates: start: 20060125
  3. LEVAQUIN [Concomitant]
  4. ACCOLATE [Concomitant]
  5. WELLBUTRIN [Concomitant]
  6. PREMPRO [Concomitant]
  7. PRILOSEC [Concomitant]
  8. ADVAIR DISKUS 100/50 [Concomitant]
  9. SUPRATZ [Concomitant]

REACTIONS (4)
  - DRUG INEFFECTIVE [None]
  - MIDDLE INSOMNIA [None]
  - PRURITUS [None]
  - URTICARIA [None]
